FAERS Safety Report 18146829 (Version 4)
Quarter: 2020Q4

REPORT INFORMATION
  Report Type: Spontaneous
  Country: DE (occurrence: DE)
  Receive Date: 20200813
  Receipt Date: 20201116
  Transmission Date: 20210113
  Serious: Yes (Life-Threatening, Hospitalization, Other)
  Sender: FDA-Public Use
  Company Number: DE-MYLANLABS-2020M1070423

PATIENT
  Age: 25 Year
  Sex: Female

DRUGS (26)
  1. HYDROCHLOROTHIAZIDE. [Suspect]
     Active Substance: HYDROCHLOROTHIAZIDE
     Indication: GESTATIONAL HYPERTENSION
     Dosage: 25 MILLIGRAM, QD (12.5 MG BID)
     Route: 048
  2. DIHYDRALAZINE [Suspect]
     Active Substance: DIHYDRALAZINE
     Indication: PRODUCT USED FOR UNKNOWN INDICATION
     Dosage: 75 MILLIGRAM, QD (25 MG, TID)
     Route: 042
     Dates: start: 20180501, end: 20180521
  3. METYRAPONE [Concomitant]
     Active Substance: METYRAPONE
     Dosage: 2.5 GRAM, QD
     Route: 065
  4. NIFEDIPINE MYLAN [Suspect]
     Active Substance: NIFEDIPINE
     Dosage: 20 MILLIGRAM, BID
     Route: 048
  5. METHYLDOPA. [Suspect]
     Active Substance: METHYLDOPA
     Indication: HYPERTENSION
     Dosage: 2000 MILLIGRAM, QD (500 MG, QID)
     Dates: start: 20180501
  6. HYDRALAZINE [Suspect]
     Active Substance: HYDRALAZINE HYDROCHLORIDE
     Indication: HYPOMAGNESAEMIA
     Dosage: UNK
     Route: 042
  7. HYDRALAZINE [Suspect]
     Active Substance: HYDRALAZINE HYDROCHLORIDE
     Indication: GESTATIONAL HYPERTENSION
     Dosage: THREE TIMES DAILY, 25 MG, TID
     Route: 048
  8. URAPIDIL [Suspect]
     Active Substance: URAPIDIL
     Indication: GESTATIONAL HYPERTENSION
     Dosage: UNK
     Route: 042
  9. HYDRALAZINE [Suspect]
     Active Substance: HYDRALAZINE HYDROCHLORIDE
     Indication: GESTATIONAL HYPERTENSION
     Dosage: 25 MILLIGRAM, Q8H
     Route: 042
  10. METOPROLOL. [Suspect]
     Active Substance: METOPROLOL
     Indication: HYPERTENSION
     Dosage: 190 MILLIGRAM, QD (95 MG, BID)
     Dates: start: 20180501, end: 20180604
  11. SPIRONOLACTONE. [Concomitant]
     Active Substance: SPIRONOLACTONE
     Indication: PRIMARY HYPERALDOSTERONISM
     Dosage: 200 MILLIGRAM, QD (100 MG, BID)
     Route: 065
  12. HYDROCHLOROTHIAZIDE. [Suspect]
     Active Substance: HYDROCHLOROTHIAZIDE
     Indication: HYPERTENSION
     Dosage: 12.5 MILLIGRAM, BID
     Route: 048
  13. NIFEDIPINE MYLAN [Suspect]
     Active Substance: NIFEDIPINE
     Indication: GESTATIONAL HYPERTENSION
     Dosage: 5 MG BID AT DISCHARGE
     Route: 065
  14. NIFEDIPINE MYLAN [Suspect]
     Active Substance: NIFEDIPINE
     Indication: HYPERTENSION
     Dosage: 40 MILLIGRAM, QD, (20 MG, BID)
  15. METHYLDOPA. [Suspect]
     Active Substance: METHYLDOPA
     Dosage: MAXIMIZED AT 2000 MG DAILY
     Route: 048
  16. SPIRONOLACTONE. [Concomitant]
     Active Substance: SPIRONOLACTONE
     Indication: CUSHING^S SYNDROME
     Dosage: 100 MILLIGRAM, BID
     Route: 065
  17. METHYLDOPA. [Suspect]
     Active Substance: METHYLDOPA
     Indication: GESTATIONAL HYPERTENSION
     Dosage: 2000 MILLIGRAM, QD (MAXIMIZED AT 2000 MG DAILY)
     Route: 048
  18. URAPIDIL [Suspect]
     Active Substance: URAPIDIL
     Indication: HYPOMAGNESAEMIA
     Dosage: UNK
     Route: 042
     Dates: start: 20180503, end: 20180521
  19. HYDRALAZINE [Suspect]
     Active Substance: HYDRALAZINE HYDROCHLORIDE
     Indication: HYPERTENSION
  20. NIFEDIPINE. [Concomitant]
     Active Substance: NIFEDIPINE
     Indication: HYPERTENSION
     Dosage: 20 MG TWO TIMES DAILY (BID)
     Route: 048
  21. METOPROLOL. [Suspect]
     Active Substance: METOPROLOL
     Indication: GESTATIONAL HYPERTENSION
     Dosage: 190 MILLIGRAM, QD (TWO TIMES DAILY, 95 MG, BID)
     Route: 048
  22. URAPIDIL [Suspect]
     Active Substance: URAPIDIL
     Indication: HYPERTENSION
     Dosage: UNK
     Route: 042
  23. HYDRALAZINE [Suspect]
     Active Substance: HYDRALAZINE HYDROCHLORIDE
     Indication: HYPERTENSION
  24. METOPROLOL. [Suspect]
     Active Substance: METOPROLOL
     Dosage: 95 MILLIGRAM, BID
     Route: 048
  25. METYRAPONE [Concomitant]
     Active Substance: METYRAPONE
     Indication: CUSHING^S SYNDROME
     Dosage: 2.5 G DAILY AT 25 0/7 WEEKS
     Route: 065
  26. NIFEDIPINE. [Concomitant]
     Active Substance: NIFEDIPINE
     Indication: GESTATIONAL HYPERTENSION
     Dosage: 5 MG BID AT DISCHARGE
     Route: 048

REACTIONS (15)
  - Hypomagnesaemia [Recovered/Resolved]
  - Platelet count decreased [Recovered/Resolved]
  - Alanine aminotransferase increased [Recovered/Resolved]
  - Premature delivery [Recovered/Resolved]
  - Blood corticotrophin decreased [Recovered/Resolved]
  - Hyperplasia adrenal [Recovered/Resolved]
  - Abnormal weight gain [Recovered/Resolved]
  - Cortisol increased [Recovered/Resolved]
  - Haptoglobin decreased [Recovered/Resolved]
  - Drug ineffective [Unknown]
  - Pre-eclampsia [Unknown]
  - Aspartate aminotransferase increased [Recovered/Resolved]
  - Blood aldosterone increased [Recovered/Resolved]
  - Maternal exposure during pregnancy [Recovered/Resolved]
  - Cortisol free urine increased [Recovered/Resolved]
